FAERS Safety Report 6626577-3 (Version None)
Quarter: 2010Q1

REPORT INFORMATION
  Report Type: 
  Country: None (occurrence: None)
  Receive Date: 20100309
  Receipt Date: 20100309
  Transmission Date: 20100710
  Serious: Yes (Other)
  Sender: FDA-Public Use
  Company Number: None

PATIENT
  Age: 65 Year
  Sex: Male
  Weight: 65.318 kg

DRUGS (1)
  1. EXELON [Suspect]
     Indication: DEMENTIA
     Dosage: 9.5 MG PATCH Q. 24 HRS. TRANSDERMAL
     Route: 062
     Dates: start: 20090101, end: 20100307

REACTIONS (3)
  - AGGRESSION [None]
  - AGITATION [None]
  - TOOTH DISORDER [None]
